FAERS Safety Report 11391650 (Version 1)
Quarter: 2015Q3

REPORT INFORMATION
  Report Type: Report from Study
  Country: FR (occurrence: FR)
  Receive Date: 20150818
  Receipt Date: 20150818
  Transmission Date: 20151125
  Serious: Yes (Life-Threatening)
  Sender: FDA-Public Use
  Company Number: FR-TEVA-586384ISR

PATIENT
  Age: 36 Year
  Weight: 94 kg

DRUGS (6)
  1. ARACYTINE [Suspect]
     Active Substance: CYTARABINE
     Route: 065
     Dates: end: 201501
  2. TRISENOX [Suspect]
     Active Substance: ARSENIC TRIOXIDE
     Indication: ACUTE PROMYELOCYTIC LEUKAEMIA
     Route: 042
     Dates: end: 201501
  3. METHOTREXATE [Suspect]
     Active Substance: METHOTREXATE
     Route: 065
     Dates: end: 201501
  4. IDARUBICIN [Suspect]
     Active Substance: IDARUBICIN
     Route: 065
     Dates: end: 201501
  5. 6-MERCAPTOPURINE [Suspect]
     Active Substance: MERCAPTOPURINE
     Route: 065
     Dates: end: 201501
  6. TRETINOIN. [Suspect]
     Active Substance: TRETINOIN
     Route: 065
     Dates: end: 201501

REACTIONS (1)
  - Refractory anaemia with an excess of blasts [Unknown]

NARRATIVE: CASE EVENT DATE: 20150731
